FAERS Safety Report 22633749 (Version 1)
Quarter: 2023Q2

REPORT INFORMATION
  Report Type: Report from Study
  Country: BE (occurrence: BE)
  Receive Date: 20230623
  Receipt Date: 20230623
  Transmission Date: 20230722
  Serious: Yes (Death)
  Sender: FDA-Public Use
  Company Number: BE-ROCHE-3367539

PATIENT

DRUGS (2)
  1. RITUXIMAB [Suspect]
     Active Substance: RITUXIMAB
     Indication: Acquired haemophilia
     Dosage: 375 MG/M2, WEEKLY, TWO ADMINISTRATIONS
     Route: 042
  2. EMICIZUMAB [Suspect]
     Active Substance: EMICIZUMAB
     Indication: Acquired haemophilia
     Dosage: 3 MG/KG, WEEKLY, TWO ADMINISTRATIONS
     Route: 065

REACTIONS (1)
  - Staphylococcal sepsis [Fatal]
